FAERS Safety Report 6826726-8 (Version None)
Quarter: 2010Q3

REPORT INFORMATION
  Report Type: 
  Country: None (occurrence: None)
  Receive Date: 20100709
  Receipt Date: 20100701
  Transmission Date: 20110219
  Serious: Yes (Hospitalization)
  Sender: FDA-Public Use
  Company Number: GXKR2010AU07325

PATIENT
  Age: 58 Year
  Sex: Female

DRUGS (6)
  1. FLUOROURACIL [Suspect]
     Indication: COLON CANCER
     Dosage: 400 MG/M2, EVERY 2 WEEKS
     Route: 040
  2. FLUOROURACIL [Suspect]
     Indication: METASTASES TO LIVER
     Dosage: 2400 MG/M2, 46-H INFUSION, EVERY 2 WEEKS
  3. OXALIPLATIN [Concomitant]
     Indication: COLON CANCER
     Dosage: 85 MG/M2, DAY 1
  4. OXALIPLATIN [Concomitant]
     Indication: METASTASES TO LIVER
  5. FOLINIC ACID [Concomitant]
     Indication: COLON CANCER
     Dosage: 20 MG/M2, DAY 1 EVERY 2  WEEK
  6. FOLINIC ACID [Concomitant]
     Indication: METASTASES TO LIVER

REACTIONS (14)
  - ABDOMINAL PAIN UPPER [None]
  - CARDIOMYOPATHY [None]
  - DISCOMFORT [None]
  - DYSPNOEA [None]
  - EJECTION FRACTION DECREASED [None]
  - HEPATOMEGALY [None]
  - HYPOTENSION [None]
  - HYPOXIA [None]
  - LACTIC ACIDOSIS [None]
  - PULMONARY OEDEMA [None]
  - RENAL IMPAIRMENT [None]
  - TACHYCARDIA [None]
  - TACHYPNOEA [None]
  - VENTRICULAR HYPOKINESIA [None]
